FAERS Safety Report 7048359-3 (Version None)
Quarter: 2010Q4

REPORT INFORMATION
  Report Type: 
  Country: None (occurrence: None)
  Receive Date: 20101015
  Receipt Date: 20101006
  Transmission Date: 20110411
  Serious: Yes (Other)
  Sender: FDA-Public Use
  Company Number: GR-ROCHE-732066

PATIENT
  Age: 66 Year
  Sex: Female

DRUGS (3)
  1. AVASTIN [Suspect]
     Indication: COLORECTAL CANCER
     Route: 042
     Dates: start: 20080101, end: 20101001
  2. XELODA [Concomitant]
  3. IRINOTECAN HCL [Concomitant]

REACTIONS (1)
  - CARDIOMYOPATHY [None]
